FAERS Safety Report 12605973 (Version 1)
Quarter: 2016Q3

REPORT INFORMATION
  Report Type: Spontaneous
  Country: US (occurrence: None)
  Receive Date: 20160728
  Receipt Date: 20160728
  Transmission Date: 20161109
  Serious: No
  Sender: FDA-Public Use
  Company Number: None

PATIENT
  Age: 50 Year
  Sex: Female
  Weight: 54.43 kg

DRUGS (4)
  1. ARMODAFINIL. [Suspect]
     Active Substance: ARMODAFINIL
     Indication: DEPRESSION
     Dosage: 30 TABLET(S) IN THE MORNING TAKEN BY MOUTH
     Route: 048
     Dates: start: 20160617
  2. STRATTERA [Concomitant]
     Active Substance: ATOMOXETINE HYDROCHLORIDE
  3. GABAPENTIN. [Concomitant]
     Active Substance: GABAPENTIN
  4. BRINTELLIX [Concomitant]
     Active Substance: VORTIOXETINE HYDROBROMIDE

REACTIONS (5)
  - Nausea [None]
  - Product substitution issue [None]
  - Drug ineffective [None]
  - Throat tightness [None]
  - Hypersensitivity [None]

NARRATIVE: CASE EVENT DATE: 20160727
